FAERS Safety Report 17697081 (Version 1)
Quarter: 2020Q2

REPORT INFORMATION
  Report Type: Spontaneous
  Country: DK (occurrence: DK)
  Receive Date: 20200423
  Receipt Date: 20200423
  Transmission Date: 20200714
  Serious: Yes (Life-Threatening, Hospitalization, Other)
  Sender: FDA-Public Use
  Company Number: DK-BRISTOL-MYERS SQUIBB COMPANY-BMS-2020-032622

PATIENT
  Age: 62 Year
  Sex: Male

DRUGS (14)
  1. SPIRIVA RESPIMAT [Concomitant]
     Active Substance: TIOTROPIUM BROMIDE
     Indication: CHRONIC OBSTRUCTIVE PULMONARY DISEASE
     Dosage: 5 MICROGRAM, DAILY
     Route: 055
     Dates: start: 20180417
  2. VENTOLINE [SALBUTAMOL SULFATE] [Concomitant]
     Active Substance: ALBUTEROL SULFATE
     Indication: BRONCHOSPASM
     Dosage: 0.1 MILLIGRAM, PRN
     Route: 055
     Dates: start: 20190306
  3. PANTOPRAZOLE [Concomitant]
     Active Substance: PANTOPRAZOLE
     Indication: PROPHYLAXIS AGAINST GASTROINTESTINAL ULCER
     Dosage: 40 MILLIGRAM, DAILY
     Route: 048
     Dates: start: 20190513
  4. APOVIT B COMBIN [Concomitant]
     Indication: VITAMIN SUPPLEMENTATION
     Dosage: 3 DOSAGE FORM, DAILY
     Route: 048
     Dates: start: 20180414
  5. METHADONE [Concomitant]
     Active Substance: METHADONE HYDROCHLORIDE
     Indication: DRUG WITHDRAWAL MAINTENANCE THERAPY
     Dosage: 90 MILLIGRAM, DAILY
     Route: 048
     Dates: start: 20170511
  6. PARACETAMOL [Concomitant]
     Active Substance: ACETAMINOPHEN
     Indication: PAIN
     Dosage: 4000 MILLIGRAM, DAILY
     Route: 048
     Dates: start: 20190513
  7. ELOCON [Concomitant]
     Active Substance: MOMETASONE FUROATE
     Indication: ECZEMA
     Dosage: 1 DOSAGE FORM, DAILY
     Route: 003
     Dates: start: 20180621
  8. NITRAZEPAM [Concomitant]
     Active Substance: NITRAZEPAM
     Indication: INSOMNIA
     Dosage: 15 MILLIGRAM, DAILY
     Route: 048
     Dates: start: 20170509
  9. THIAMINE. [Concomitant]
     Active Substance: THIAMINE
     Indication: VITAMIN SUPPLEMENTATION
     Dosage: 300 MILLIGRAM, DAILY
     Route: 048
     Dates: start: 20180414
  10. ELIQUIS [Suspect]
     Active Substance: APIXABAN
     Indication: THROMBOSIS PROPHYLAXIS
     Dosage: 10 MILLIGRAM, DAILY
     Route: 048
     Dates: start: 201712, end: 20200407
  11. SIMVASTATIN. [Concomitant]
     Active Substance: SIMVASTATIN
     Indication: HYPERCHOLESTEROLAEMIA
     Dosage: 40 MILLIGRAM, DAILY
     Route: 048
     Dates: start: 20180621
  12. COLECALCIFEROL [Concomitant]
     Active Substance: CHOLECALCIFEROL
     Indication: VITAMIN SUPPLEMENTATION
     Dosage: UNK
     Route: 048
     Dates: start: 20170511
  13. SILDENAFIL. [Concomitant]
     Active Substance: SILDENAFIL
     Indication: ERECTILE DYSFUNCTION
     Dosage: 50 MILLIGRAM, DAILY
     Route: 048
     Dates: start: 20190212
  14. METOPROLOL SUCCINATE. [Concomitant]
     Active Substance: METOPROLOL SUCCINATE
     Indication: HEART RATE IRREGULAR
     Dosage: 50 MILLIGRAM, DAILY
     Route: 048
     Dates: start: 20171128

REACTIONS (5)
  - Hemiparesis [Unknown]
  - Dysarthria [Unknown]
  - Brain midline shift [Unknown]
  - Facial paresis [Unknown]
  - Cerebral haemorrhage [Recovering/Resolving]

NARRATIVE: CASE EVENT DATE: 20200407
